FAERS Safety Report 4930186-1 (Version None)
Quarter: 2006Q1

REPORT INFORMATION
  Report Type: 
  Country: None (occurrence: None)
  Receive Date: 20060302
  Receipt Date: 20060222
  Transmission Date: 20060701
  Serious: Yes (Other)
  Sender: FDA-Public Use
  Company Number: JP-ROCHE-438129

PATIENT
  Age: 88 Year
  Sex: Male

DRUGS (1)
  1. TAMIFLU [Suspect]
     Dosage: DOSE FORM REPORTED AS ORAL FORMULATION
     Route: 048
     Dates: start: 20060221, end: 20060221

REACTIONS (2)
  - INCORRECT ROUTE OF DRUG ADMINISTRATION [None]
  - LOSS OF CONSCIOUSNESS [None]
